FAERS Safety Report 21418846 (Version 7)
Quarter: 2024Q1

REPORT INFORMATION
  Report Type: Report from Study
  Country: DE (occurrence: DE)
  Receive Date: 20221006
  Receipt Date: 20240227
  Transmission Date: 20240409
  Serious: Yes (Hospitalization, Other)
  Sender: FDA-Public Use
  Company Number: DE-PFM-2022-07217

PATIENT
  Age: 53 Year
  Sex: Female
  Weight: 86 kg

DRUGS (11)
  1. BRAFTOVI [Suspect]
     Active Substance: ENCORAFENIB
     Indication: Colorectal cancer
     Dosage: 300 MG DAILY
     Route: 048
     Dates: start: 20220127
  2. BRAFTOVI [Suspect]
     Active Substance: ENCORAFENIB
     Dosage: 300 MG DAILY
     Route: 048
     Dates: start: 20221222, end: 20230529
  3. CETUXIMAB [Suspect]
     Active Substance: CETUXIMAB
     Indication: Colorectal cancer
     Dosage: 250 MG/M2, WEEKLY
     Route: 042
     Dates: start: 20220127
  4. CETUXIMAB [Suspect]
     Active Substance: CETUXIMAB
     Dosage: 250 MG/M2, WEEKLY
     Route: 042
     Dates: start: 20221222, end: 20230530
  5. DOXYCYCLIN RATIOPHARM [Concomitant]
     Indication: Prophylaxis
     Dosage: 100 MG DAILY
     Route: 048
     Dates: start: 20220127
  6. CLEMASTINE [Concomitant]
     Active Substance: CLEMASTINE
     Indication: Prophylaxis
     Dosage: 2 MG PER CYCLE
     Route: 042
     Dates: start: 20220127, end: 20220901
  7. DEXAMETHASONE [Concomitant]
     Active Substance: DEXAMETHASONE
     Indication: Prophylaxis
     Dosage: 8 MG PER CYCLE
     Route: 042
     Dates: start: 20220127, end: 20220901
  8. CHOLECALCIFEROL [Concomitant]
     Active Substance: CHOLECALCIFEROL
     Indication: Prophylaxis
     Dosage: 2000 IU WEEKLY
     Route: 048
     Dates: start: 20220127
  9. ONDANSETRON RATIOPHARM [Concomitant]
     Indication: Prophylaxis
     Dosage: 4 MG PRN (AS NEEDED)
     Route: 048
     Dates: start: 20220127
  10. XARELTO [Concomitant]
     Active Substance: RIVAROXABAN
     Indication: Prophylaxis
     Dosage: 10 MG DAILY
     Route: 048
     Dates: start: 20220513
  11. L-THYROXIN BETA [Concomitant]
     Indication: Prophylaxis
     Dosage: 112 UG DAILY
     Route: 048
     Dates: start: 20220520

REACTIONS (2)
  - Sepsis [Recovered/Resolved]
  - Coma [Unknown]

NARRATIVE: CASE EVENT DATE: 20220902
